FAERS Safety Report 9718113 (Version 1)
Quarter: 2013Q4

REPORT INFORMATION
  Report Type: Not Available
  Country: US (occurrence: US)
  Receive Date: 20131125
  Receipt Date: 20131125
  Transmission Date: 20140711
  Serious: No
  Sender: FDA-Public Use
  Company Number: US-VIVUS-2013V1000471

PATIENT
  Age: 57 Year
  Sex: Female
  Weight: 97.61 kg

DRUGS (1)
  1. QSYMIA 3.75MG/23MG [Suspect]
     Indication: WEIGHT DECREASED
     Route: 048
     Dates: start: 201306

REACTIONS (4)
  - Chills [Recovering/Resolving]
  - Tremor [Recovering/Resolving]
  - Influenza like illness [Recovering/Resolving]
  - Feeling abnormal [Recovering/Resolving]
